FAERS Safety Report 9862660 (Version 1)
Quarter: 2014Q1

REPORT INFORMATION
  Report Type: Spontaneous
  Country: ES (occurrence: None)
  Receive Date: 20140130
  Receipt Date: 20140130
  Transmission Date: 20141002
  Serious: Yes (Death, Hospitalization, Other)
  Sender: FDA-Public Use
  Company Number: KAD201401-000091

PATIENT
  Age: 63 Year
  Sex: Male

DRUGS (6)
  1. RIBAVIRIN (RIBAVIRIN) [Suspect]
     Indication: HEPATITIS C
  2. PEGYLATED INTERFERON (PEGYLATED INTERFERON) [Suspect]
     Indication: HEPATITIS C
     Dosage: 180 MCG/WEEK
  3. TELAPREVIR (TELAPREVIR) [Suspect]
     Indication: HEPATITIS C
  4. PREDNISONE (PREDNISONE) [Suspect]
     Dosage: 5 MG/DAY
  5. AZATHIOPRINE (AZATHIOPRINE) [Suspect]
     Dosage: 75 MG/DAY
  6. CYCLOSPORINE [Suspect]
     Dosage: 50 MG/12 H

REACTIONS (8)
  - Hypercholesterolaemia [None]
  - Hepatitis cholestatic [None]
  - Disseminated tuberculosis [None]
  - Acute lung injury [None]
  - Histiocytosis haematophagic [None]
  - Lung infection [None]
  - Renal failure acute [None]
  - Haemoglobin decreased [None]
